FAERS Safety Report 17255213 (Version 9)
Quarter: 2021Q1

REPORT INFORMATION
  Report Type: Report from Study
  Country: None (occurrence: JP)
  Receive Date: 20200110
  Receipt Date: 20210302
  Transmission Date: 20210419
  Serious: Yes (Hospitalization, Other)
  Sender: FDA-Public Use
  Company Number: JP-ABBVIE-18K-087-2304726-00

PATIENT
  Age: 59 Year
  Sex: Male
  Weight: 72 kg

DRUGS (16)
  1. ISTRADEFYLLINE [Concomitant]
     Active Substance: ISTRADEFYLLINE
     Indication: PARKINSON^S DISEASE
     Route: 048
     Dates: start: 20181227
  2. LUBIPROSTONE [Concomitant]
     Active Substance: LUBIPROSTONE
     Indication: PRODUCT USED FOR UNKNOWN INDICATION
     Dosage: 48 MG
     Route: 048
     Dates: start: 20180614
  3. DUODOPA [Suspect]
     Active Substance: CARBIDOPA\LEVODOPA
     Indication: PARKINSON^S DISEASE
     Dosage: LED: 1800 MG/DAY
     Route: 050
     Dates: start: 20180306, end: 201803
  4. DUODOPA [Suspect]
     Active Substance: CARBIDOPA\LEVODOPA
     Dosage: MD 8.5 ML, CD 3.5 ML/HR X 18 HRS, ED 1.5 ML/UNIT X 4 TIMES
     Route: 050
     Dates: start: 20180407, end: 20190826
  5. CARBIDOPA HYDRATE ?LEVODOPA MIXT [Concomitant]
     Route: 048
     Dates: start: 20180408
  6. LOXOPROFEN SODIUM HYDRATE [Concomitant]
     Active Substance: LOXOPROFEN SODIUM DIHYDRATE
     Indication: PRODUCT USED FOR UNKNOWN INDICATION
     Route: 062
  7. PREGABALIN. [Concomitant]
     Active Substance: PREGABALIN
     Indication: PRODUCT USED FOR UNKNOWN INDICATION
     Route: 048
     Dates: start: 20180719
  8. DUODOPA [Suspect]
     Active Substance: CARBIDOPA\LEVODOPA
     Dosage: MD 8.5 ML, CD 3.2 ML/HR X 18 HRS, ED 1 ML/UNIT X 4 TIMES
     Route: 050
     Dates: start: 20180313, end: 20180406
  9. CELECOXIB. [Concomitant]
     Active Substance: CELECOXIB
     Indication: PRODUCT USED FOR UNKNOWN INDICATION
     Route: 048
  10. ZONISAMIDE. [Concomitant]
     Active Substance: ZONISAMIDE
     Indication: PARKINSON^S DISEASE
     Route: 048
  11. MAGNESIUM OXIDE. [Concomitant]
     Active Substance: MAGNESIUM OXIDE
     Indication: PRODUCT USED FOR UNKNOWN INDICATION
     Route: 048
  12. ROTIGOTINE [Concomitant]
     Active Substance: ROTIGOTINE
     Indication: PARKINSON^S DISEASE
     Route: 062
     Dates: start: 20190902
  13. DUODOPA [Suspect]
     Active Substance: CARBIDOPA\LEVODOPA
     Dosage: MD 10.5 ML, CD 3.7 ML/HR X 18 HRS, ED 1 ML/UNIT X 4 TIMES
     Route: 050
     Dates: start: 20180308, end: 20180313
  14. DUODOPA [Suspect]
     Active Substance: CARBIDOPA\LEVODOPA
     Dosage: MD: 8.5 ML?CD: 3.8 ML/HR X 18 HRS?ED: 1.5 ML/UNIT X 4
     Route: 050
     Dates: start: 20190826
  15. CARBIDOPA HYDRATE ?LEVODOPA MIXT [Concomitant]
     Indication: PARKINSON^S DISEASE
     Route: 048
  16. SENNOSIDES A+B [Concomitant]
     Active Substance: SENNOSIDES A AND B
     Indication: PRODUCT USED FOR UNKNOWN INDICATION
     Route: 048

REACTIONS (11)
  - Stoma site extravasation [Unknown]
  - Seizure [Recovered/Resolved]
  - Seizure [Recovered/Resolved]
  - Spinal osteoarthritis [Recovering/Resolving]
  - Hallucination, visual [Recovering/Resolving]
  - Drug ineffective [Unknown]
  - Hypokinesia [Recovering/Resolving]
  - Insomnia [Recovering/Resolving]
  - Surgery [Unknown]
  - On and off phenomenon [Unknown]
  - Malaise [Unknown]

NARRATIVE: CASE EVENT DATE: 20180404
